FAERS Safety Report 6784657-6 (Version None)
Quarter: 2010Q2

REPORT INFORMATION
  Report Type: 
  Country: None (occurrence: None)
  Receive Date: 20100622
  Receipt Date: 20100614
  Transmission Date: 20101027
  Serious: Yes (Hospitalization)
  Sender: FDA-Public Use
  Company Number: B0661523A

PATIENT
  Sex: Male

DRUGS (20)
  1. MELPHALAN HYDROCHLORIDE [Suspect]
     Indication: MULTIPLE MYELOMA
     Dates: start: 20100426, end: 20100429
  2. THALIDOMIDE [Suspect]
     Indication: MULTIPLE MYELOMA
     Route: 048
     Dates: start: 20100426
  3. PREDNISONE [Suspect]
     Indication: MULTIPLE MYELOMA
     Dates: start: 20100426, end: 20100429
  4. MORPHINE [Suspect]
     Indication: BONE PAIN
     Route: 048
     Dates: start: 20100326
  5. NEXIUM [Concomitant]
     Indication: PROPHYLAXIS
     Dosage: 20MG PER DAY
     Route: 048
  6. TRAMAL [Concomitant]
     Indication: PAIN
     Route: 048
  7. MS CONTIN [Concomitant]
     Indication: PAIN
     Route: 048
     Dates: start: 20100322
  8. ZOMETA [Concomitant]
     Indication: PROPHYLAXIS
     Route: 042
  9. SINTROM [Concomitant]
     Dates: end: 20100416
  10. CLEXANE [Concomitant]
     Dosage: 140MG TWICE PER DAY
     Route: 058
     Dates: start: 20100422
  11. FRAXIFORTE [Concomitant]
     Dosage: .6ML PER DAY
     Route: 058
  12. PRIMPERAN TAB [Concomitant]
     Route: 048
     Dates: start: 20100315
  13. ZOFRAN [Concomitant]
     Route: 048
     Dates: start: 20100315
  14. DAFALGAN [Concomitant]
     Route: 048
     Dates: end: 20100325
  15. TOREM [Concomitant]
     Route: 048
  16. SORTIS [Concomitant]
     Dosage: 40MG PER DAY
     Route: 048
  17. NULYTELY [Concomitant]
     Dosage: 13G PER DAY
     Route: 048
     Dates: start: 20100406
  18. LORAZEPAM [Concomitant]
     Route: 048
     Dates: start: 20100416
  19. KONAKION [Concomitant]
     Route: 048
  20. LOW MOLECULAR WEIGHT HEPARIN [Concomitant]

REACTIONS (6)
  - CONSTIPATION [None]
  - DECREASED APPETITE [None]
  - DEHYDRATION [None]
  - GENERAL PHYSICAL HEALTH DETERIORATION [None]
  - HYPERSOMNIA [None]
  - MOBILITY DECREASED [None]
